FAERS Safety Report 13810817 (Version 1)
Quarter: 2017Q3

REPORT INFORMATION
  Report Type: Spontaneous
  Country: US (occurrence: US)
  Receive Date: 20170728
  Receipt Date: 20170728
  Transmission Date: 20171127
  Serious: No
  Sender: FDA-Public Use
  Company Number: US-AKRIMAX-TIR-2017-0652

PATIENT
  Sex: Female

DRUGS (1)
  1. TIROSINT [Suspect]
     Active Substance: LEVOTHYROXINE SODIUM
     Indication: HYPOTHYROIDISM
     Dosage: ONE 100MCG CAPSULE DAILY
     Route: 048

REACTIONS (7)
  - Skin odour abnormal [Unknown]
  - Pruritus [Unknown]
  - Muscular weakness [Unknown]
  - Cortisol decreased [Unknown]
  - Temperature intolerance [Unknown]
  - Fat tissue increased [Unknown]
  - Rash [Unknown]

NARRATIVE: CASE EVENT DATE: 2017
